FAERS Safety Report 6207629-9 (Version None)
Quarter: 2009Q2

REPORT INFORMATION
  Report Type: 
  Country: None (occurrence: None)
  Receive Date: 20090526
  Receipt Date: 20090511
  Transmission Date: 20091009
  Serious: Yes (Disabling, Other)
  Sender: FDA-Public Use
  Company Number: 2009AL003272

PATIENT
  Age: 68 Year
  Sex: Female

DRUGS (4)
  1. DICLOFENAC SODIUM [Suspect]
     Indication: DRUG USE FOR UNKNOWN INDICATION
  2. FERROUS SUL ELX [Suspect]
  3. RIVAROXABAN [Concomitant]
  4. FRUMIL [Concomitant]

REACTIONS (9)
  - BLOOD SODIUM DECREASED [None]
  - DRUG INTERACTION [None]
  - DYSPEPSIA [None]
  - GASTROINTESTINAL HAEMORRHAGE [None]
  - HAEMOGLOBIN DECREASED [None]
  - MALAISE [None]
  - ORTHOSTATIC HYPOTENSION [None]
  - PAIN [None]
  - SYNCOPE [None]
